FAERS Safety Report 7568163-7 (Version None)
Quarter: 2011Q2

REPORT INFORMATION
  Report Type: 
  Country: None (occurrence: None)
  Receive Date: 20110623
  Receipt Date: 20110616
  Transmission Date: 20111010
  Serious: Yes (Hospitalization)
  Sender: FDA-Public Use
  Company Number: US-ACTELION-A-US2011-50479

PATIENT

DRUGS (3)
  1. TRACLEER [Suspect]
     Indication: PULMONARY ARTERIAL HYPERTENSION
     Dosage: UNK
     Route: 048
     Dates: start: 20030916
  2. CALCIUM CHANNEL BLOCKERS [Concomitant]
  3. WARFARIN SODIUM [Concomitant]

REACTIONS (2)
  - PNEUMONIA [None]
  - INFECTION [None]
